FAERS Safety Report 11197241 (Version 2)
Quarter: 2019Q1

REPORT INFORMATION
  Report Type: Report from Study
  Country: US (occurrence: US)
  Receive Date: 20150617
  Receipt Date: 20190314
  Transmission Date: 20190417
  Serious: Yes (Other)
  Sender: FDA-Public Use
  Company Number: US-SA-2015SA011260

PATIENT
  Age: 37 Year
  Sex: Female

DRUGS (4)
  1. CEREZYME [Suspect]
     Active Substance: IMIGLUCERASE
     Dosage: FREQUENCY: Q2 DOSE: 5200(UNIST NOT PROVIDED)
     Route: 041
     Dates: start: 20170215
  2. CEREZYME [Suspect]
     Active Substance: IMIGLUCERASE
     Indication: GAUCHER^S DISEASE
     Dosage: 60 MG/KG (6000); FREQUENCY: Q2
     Route: 041
     Dates: start: 20081001, end: 20150812
  3. METHADONE [Concomitant]
     Active Substance: METHADONE HYDROCHLORIDE
     Indication: PAIN
     Dosage: UNK UNK, UNK
     Route: 065
  4. CEREZYME [Suspect]
     Active Substance: IMIGLUCERASE
     Dosage: 4800 MG,UNK
     Route: 041

REACTIONS (10)
  - Toothache [Not Recovered/Not Resolved]
  - Exposure during pregnancy [Recovered/Resolved]
  - Abortion spontaneous [Unknown]
  - Flatulence [Recovering/Resolving]
  - Abdominal pain [Unknown]
  - Pain in extremity [Unknown]
  - Diarrhoea [Recovering/Resolving]
  - Vomiting [Recovered/Resolved]
  - Speech disorder [Unknown]
  - Migraine [Recovering/Resolving]

NARRATIVE: CASE EVENT DATE: 201510
